FAERS Safety Report 24813994 (Version 1)
Quarter: 2025Q1

REPORT INFORMATION
  Report Type: Report from Study
  Country: US (occurrence: US)
  Receive Date: 20250107
  Receipt Date: 20250107
  Transmission Date: 20250416
  Serious: Yes (Hospitalization)
  Sender: GILEAD
  Company Number: US-GILEAD-2025-0698804

PATIENT
  Sex: Female

DRUGS (4)
  1. AZTREONAM LYSINE [Suspect]
     Active Substance: AZTREONAM LYSINE
     Indication: Bacterial disease carrier
     Dosage: 75 MG, TID [CYCLING ONE WEEK ON AND ONE WEEK OFF]
     Route: 055
  2. LEVALBUTEROL [Concomitant]
     Active Substance: LEVALBUTEROL
  3. PULMICORT TURBUHALER [Concomitant]
     Active Substance: BUDESONIDE
  4. SODIUM CHLORIDE [Concomitant]
     Active Substance: SODIUM CHLORIDE

REACTIONS (3)
  - Respiratory syncytial virus infection [Unknown]
  - Product use issue [Unknown]
  - Product use in unapproved indication [Unknown]
